FAERS Safety Report 22519129 (Version 23)
Quarter: 2024Q2

REPORT INFORMATION
  Report Type: Report from Study
  Country: CO (occurrence: CO)
  Receive Date: 20230605
  Receipt Date: 20240525
  Transmission Date: 20240716
  Serious: Yes (Life-Threatening, Hospitalization, Other)
  Sender: FDA-Public Use
  Company Number: CO-TAKEDA-2023TUS053983

PATIENT
  Age: 27 Year
  Sex: Female
  Weight: 52 kg

DRUGS (13)
  1. ICATIBANT [Suspect]
     Active Substance: ICATIBANT ACETATE
     Indication: Hereditary angioedema
     Dosage: 1 DOSAGE FORM
     Route: 058
     Dates: start: 20230201
  2. ICATIBANT [Suspect]
     Active Substance: ICATIBANT ACETATE
     Indication: Hereditary angioedema
     Dosage: 1 DOSAGE FORM
     Route: 058
     Dates: start: 20230201
  3. ICATIBANT [Suspect]
     Active Substance: ICATIBANT ACETATE
     Dosage: 30 MILLIGRAM
     Route: 065
  4. ICATIBANT [Suspect]
     Active Substance: ICATIBANT ACETATE
     Dosage: 30 MILLIGRAM
     Route: 065
  5. LANADELUMAB [Suspect]
     Active Substance: LANADELUMAB
     Indication: Immune system disorder
     Dosage: 150 MILLIGRAM, MONTHLY
     Route: 058
     Dates: start: 20240101
  6. LANADELUMAB [Suspect]
     Active Substance: LANADELUMAB
     Indication: Hereditary angioedema
     Dosage: 300 MILLIGRAM, Q2WEEKS
     Route: 058
  7. LANADELUMAB [Suspect]
     Active Substance: LANADELUMAB
     Dosage: 2 MILLILITER, MONTHLY
     Route: 058
  8. LANADELUMAB [Suspect]
     Active Substance: LANADELUMAB
     Dosage: 300 MILLIGRAM, MONTHLY
     Route: 058
  9. LANADELUMAB [Suspect]
     Active Substance: LANADELUMAB
     Dosage: UNK UNK, MONTHLY
     Route: 058
  10. LANADELUMAB [Suspect]
     Active Substance: LANADELUMAB
     Dosage: 300 MILLIGRAM, MONTHLY
     Route: 058
  11. VENLAFAXINE [Concomitant]
     Active Substance: VENLAFAXINE HYDROCHLORIDE
     Dosage: 125 MILLIGRAM, QD
     Route: 048
  12. LEVOMEPROMAZINE [Concomitant]
     Active Substance: LEVOMEPROMAZINE
     Dosage: 25 MILLIGRAM, QD
     Route: 048
  13. IMPLANON [Concomitant]
     Active Substance: ETONOGESTREL
     Dosage: UNK
     Route: 058

REACTIONS (32)
  - Suicide attempt [Unknown]
  - Neuralgia [Not Recovered/Not Resolved]
  - Oropharyngeal pain [Not Recovered/Not Resolved]
  - Pain in extremity [Not Recovered/Not Resolved]
  - Facial pain [Recovering/Resolving]
  - Neck pain [Not Recovered/Not Resolved]
  - Depression [Recovering/Resolving]
  - Somnolence [Recovering/Resolving]
  - Incoherent [Recovering/Resolving]
  - Teratoma [Recovering/Resolving]
  - Cholelithiasis [Recovering/Resolving]
  - Pruritus [Recovered/Resolved]
  - Application site pruritus [Recovering/Resolving]
  - Abdominal pain lower [Not Recovered/Not Resolved]
  - Procedural pain [Not Recovered/Not Resolved]
  - Crying [Not Recovered/Not Resolved]
  - Unemployment [Unknown]
  - Illness [Unknown]
  - Inflammation [Recovered/Resolved]
  - Depressed mood [Not Recovered/Not Resolved]
  - Limb injury [Recovering/Resolving]
  - Insomnia [Recovering/Resolving]
  - Back pain [Recovering/Resolving]
  - Dysuria [Recovering/Resolving]
  - Malaise [Recovering/Resolving]
  - Weight increased [Not Recovered/Not Resolved]
  - Rash macular [Recovered/Resolved]
  - Urinary tract infection [Recovering/Resolving]
  - Abdominal pain [Recovering/Resolving]
  - Diarrhoea [Recovering/Resolving]
  - Incorrect dose administered [Unknown]
  - Product prescribing issue [Unknown]

NARRATIVE: CASE EVENT DATE: 20230628
